FAERS Safety Report 6729182-3 (Version None)
Quarter: 2010Q2

REPORT INFORMATION
  Report Type: 
  Country: None (occurrence: None)
  Receive Date: 20100517
  Receipt Date: 20100415
  Transmission Date: 20101027
  Serious: Yes (Other)
  Sender: FDA-Public Use
  Company Number: US-ABBOTT-10P-163-0639482-00

PATIENT
  Sex: Female
  Weight: 97.61 kg

DRUGS (4)
  1. SIMCOR [Suspect]
     Indication: BLOOD CHOLESTEROL INCREASED
     Dosage: 500/20MG TABLETS
     Route: 048
     Dates: start: 20100327, end: 20100412
  2. METFORMIN HYDROCHLORIDE [Concomitant]
     Indication: DIABETES MELLITUS
  3. AROMASIN [Concomitant]
     Indication: BREAST CANCER
  4. AROMASIN [Concomitant]
     Indication: HORMONE REPLACEMENT THERAPY

REACTIONS (4)
  - DYSPNOEA [None]
  - PRURITUS [None]
  - SKIN BURNING SENSATION [None]
  - URTICARIA [None]
